FAERS Safety Report 23508403 (Version 1)
Quarter: 2024Q1

REPORT INFORMATION
  Report Type: Spontaneous
  Country: CA (occurrence: CA)
  Receive Date: 20240209
  Receipt Date: 20240209
  Transmission Date: 20240409
  Serious: Yes (Other)
  Sender: FDA-Public Use
  Company Number: CA-FreseniusKabi-FK202402066

PATIENT
  Age: 31 Year
  Sex: Female
  Weight: 71 kg

DRUGS (10)
  1. DIPHENHYDRAMINE [Suspect]
     Active Substance: DIPHENHYDRAMINE
     Indication: Premedication
     Dosage: ROUTE: UNKNOWN
  2. DIPHENHYDRAMINE [Suspect]
     Active Substance: DIPHENHYDRAMINE
     Dosage: FORM OF ADMIN.: NOT SPECIFIED?ROUTE UNKNOWN
  3. BENADRYL [Suspect]
     Active Substance: DIPHENHYDRAMINE HYDROCHLORIDE
     Indication: Premedication
     Dosage: FOA: NOT SPECIFIED?ROA: UNKNOWN
  4. BOTULINUM TOXIN TYPE A [Suspect]
     Active Substance: BOTULINUM TOXIN TYPE A
     Indication: Migraine
     Dosage: FOA: NOT SPECIFIED
     Route: 030
  5. CLONAZEPAM [Suspect]
     Active Substance: CLONAZEPAM
     Indication: Product used for unknown indication
     Dosage: FOA: TABLET?ROA: UNKNOWN
  6. HYDROCORTISONE [Suspect]
     Active Substance: HYDROCORTISONE
     Indication: Premedication
     Dosage: FOA: NOT SPECIFIED?ROA: UNKNOWN
  7. INFLIXIMAB [Suspect]
     Active Substance: INFLIXIMAB
     Indication: Premedication
     Dosage: FOA: NOT SPECIFIED?ROA: UNKNOWN
  8. KEPPRA [Suspect]
     Active Substance: LEVETIRACETAM
     Indication: Seizure
     Dosage: FOA: TABLET?ROA: UNKNOWN
  9. QUETIAPINE FUMARATE [Suspect]
     Active Substance: QUETIAPINE FUMARATE
     Indication: Seizure
     Dosage: FOA: TABLET
     Route: 048
  10. REMICADE [Suspect]
     Active Substance: INFLIXIMAB
     Indication: Crohn^s disease
     Dosage: FOA: POWDER FOR SOLUTION INTRAVENOUS?400MG?1 EVERY 4 WEEK
     Route: 042

REACTIONS (2)
  - Influenza like illness [Recovered/Resolved]
  - Maternal exposure during pregnancy [Recovered/Resolved]
